FAERS Safety Report 18858718 (Version 1)
Quarter: 2021Q1

REPORT INFORMATION
  Report Type: Spontaneous
  Country: US (occurrence: US)
  Receive Date: 20210206
  Receipt Date: 20210206
  Transmission Date: 20210420
  Serious: No
  Sender: FDA-Public Use
  Company Number: None

PATIENT
  Age: 78 Year
  Sex: Female
  Weight: 70.8 kg

DRUGS (12)
  1. CAPECITABINE. [Suspect]
     Active Substance: CAPECITABINE
     Indication: BREAST CANCER
     Dosage: ?          OTHER FREQUENCY:1000MG AM 500MG PM;?
     Route: 048
     Dates: start: 20201121
  2. NIFEDIPINE 10MG [Concomitant]
  3. TRAZODONE [Concomitant]
     Active Substance: TRAZODONE HYDROCHLORIDE
  4. HERCEPTIN 600?10000 MG?UNIT [Concomitant]
  5. VITAMIN D 5000U [Concomitant]
  6. CALCIUM 600MG [Concomitant]
  7. CHLORTHALIDONE 25MG [Concomitant]
     Active Substance: CHLORTHALIDONE
  8. ANASTROZOLE 1MG [Concomitant]
     Active Substance: ANASTROZOLE
  9. TRAMADOL 100MG [Concomitant]
     Active Substance: TRAMADOL
  10. TUKYSA 150MG [Concomitant]
  11. ATENOLOL 25MG [Concomitant]
     Active Substance: ATENOLOL
  12. PRAVASTATIN. [Concomitant]
     Active Substance: PRAVASTATIN

REACTIONS (1)
  - Nail disorder [None]

NARRATIVE: CASE EVENT DATE: 20210205
